FAERS Safety Report 5367478-0 (Version None)
Quarter: 2007Q2

REPORT INFORMATION
  Report Type: 
  Country: None (occurrence: None)
  Receive Date: 20070622
  Receipt Date: 20061025
  Transmission Date: 20071010
  Serious: No
  Sender: FDA-Public Use
  Company Number: US-ASTRAZENECA-2006UW20582

PATIENT
  Age: 68 Year
  Sex: Female
  Weight: 55.3 kg

DRUGS (7)
  1. PULMICORT RESPULES [Suspect]
     Indication: CHRONIC OBSTRUCTIVE PULMONARY DISEASE
     Route: 055
     Dates: start: 20050101
  2. ALBUTEROL [Suspect]
     Indication: CHRONIC OBSTRUCTIVE PULMONARY DISEASE
  3. TOPROL-XL [Concomitant]
  4. DYAZIDE [Concomitant]
  5. FLORADIL [Concomitant]
  6. SPIRIVA [Concomitant]
  7. MAVIK [Concomitant]

REACTIONS (2)
  - MEDICATION ERROR [None]
  - RASH [None]
